FAERS Safety Report 4548607-5 (Version None)
Quarter: 2004Q4

REPORT INFORMATION
  Report Type: 
  Country: None (occurrence: None)
  Receive Date: 20041227
  Receipt Date: 20040915
  Transmission Date: 20050328
  Serious: No
  Sender: FDA-Public Use
  Company Number: 04P-163-0273327-00

PATIENT
  Age: 59 Year
  Sex: Female
  Weight: 63.5036 kg

DRUGS (9)
  1. HUMIRA [Suspect]
     Indication: RHEUMATOID ARTHRITIS
     Dosage: 40 MG, 1 IN 2 WK, SUBCUTANEOUS
     Route: 058
     Dates: start: 20040802
  2. BENICAR [Concomitant]
  3. HYDROCHLOROTHIAZIDE [Concomitant]
  4. BP PILL [Concomitant]
  5. AMITRIPTYLINE HYDROCHLORIDE [Concomitant]
  6. PREDNISONE [Concomitant]
  7. METHOTREXATE SODIUM [Concomitant]
  8. ESTROGENS CONJUGATED [Concomitant]
  9. FOLIC ACID [Concomitant]

REACTIONS (5)
  - BLOOD PRESSURE INCREASED [None]
  - HYPOAESTHESIA [None]
  - PARAESTHESIA [None]
  - SKIN DISCOLOURATION [None]
  - VISION BLURRED [None]
